FAERS Safety Report 8473828-9 (Version None)
Quarter: 2012Q2

REPORT INFORMATION
  Report Type: 
  Country: None (occurrence: None)
  Receive Date: 20120628
  Receipt Date: 20111228
  Transmission Date: 20120825
  Serious: Yes (Death)
  Sender: FDA-Public Use
  Company Number: US-MYLANLABS-2011S1025392

PATIENT
  Age: 56 Year
  Sex: Male
  Weight: 81.65 kg

DRUGS (4)
  1. CLOZAPINE [Suspect]
  2. RISPERIDONE [Concomitant]
  3. CLOZAPINE [Suspect]
  4. DESIPRAMIDE HCL [Concomitant]

REACTIONS (1)
  - MYOCARDIAL INFARCTION [None]
